FAERS Safety Report 10241812 (Version 1)
Quarter: 2014Q2

REPORT INFORMATION
  Report Type: Spontaneous
  Country: US (occurrence: None)
  Receive Date: 20140612
  Receipt Date: 20140612
  Transmission Date: 20141212
  Serious: Yes (Other)
  Sender: FDA-Public Use
  Company Number: US-ZYDUS-003658

PATIENT
  Age: 73 Year
  Sex: Male

DRUGS (1)
  1. WARFARIN [Suspect]
     Indication: ATRIAL FIBRILLATION

REACTIONS (5)
  - Hypersensitivity vasculitis [None]
  - Nephropathy [None]
  - Rash erythematous [None]
  - Haematuria [None]
  - Proteinuria [None]
